FAERS Safety Report 22218686 (Version 1)
Quarter: 2023Q2

REPORT INFORMATION
  Report Type: Spontaneous
  Country: US (occurrence: None)
  Receive Date: 20230414
  Receipt Date: 20230414
  Transmission Date: 20230722
  Serious: Yes (Hospitalization)
  Sender: FDA-Public Use
  Company Number: None

PATIENT
  Sex: Male

DRUGS (2)
  1. EPOGEN [Suspect]
     Active Substance: ERYTHROPOIETIN
     Indication: Iron deficiency anaemia
     Dosage: OTHER QUANTITY : 2ML(40,000 UNITS);?OTHER FREQUENCY : ONCE EVERY 7 DAYS;?
     Route: 058
     Dates: start: 20220607
  2. PROMACTA [Suspect]
     Active Substance: ELTROMBOPAG OLAMINE

REACTIONS (1)
  - Haemodialysis [None]
